FAERS Safety Report 19644444 (Version 1)
Quarter: 2021Q3

REPORT INFORMATION
  Report Type: Spontaneous
  Country: CN (occurrence: CN)
  Receive Date: 20210801
  Receipt Date: 20210801
  Transmission Date: 20211014
  Serious: Yes (Hospitalization)
  Sender: FDA-Public Use
  Company Number: CN-BAXTER-2021BAX023591

PATIENT
  Age: 63 Year
  Sex: Female
  Weight: 61 kg

DRUGS (16)
  1. 0.9% SODIUM CHLORIDE INJECTION [Suspect]
     Active Substance: SODIUM CHLORIDE
     Indication: MEDICATION DILUTION
     Dosage: DAY 1: ENDOXAN 800 MG + 0.9% SODIUM CHLORIDE 100 ML
     Route: 041
     Dates: start: 20190315, end: 20190315
  2. PHARMORUBICIN [Suspect]
     Active Substance: EPIRUBICIN
     Indication: LYMPHOMA
     Dosage: DAY 1: PHARMORUBICIN 80 MG + 5% GLUCOSE 100 ML
     Route: 041
     Dates: start: 20190315, end: 20190315
  3. XIAIKE [Suspect]
     Active Substance: VINDESINE
     Indication: LYMPHOMA
     Dosage: DAY 1: XIAIKE 3.5 MG + 0.9% SODIUM CHLORIDE 100 ML
     Route: 041
     Dates: start: 20190315, end: 20190315
  4. XIAIKE [Suspect]
     Active Substance: VINDESINE
     Dosage: DOSE RE?INTRODUCED: XIAIKE + 0.9% SODIUM CHLORIDE
     Route: 041
  5. 0.9% SODIUM CHLORIDE INJECTION [Suspect]
     Active Substance: SODIUM CHLORIDE
     Dosage: DOSE RE?INTRODUCED: ENDOXAN + 0.9% SODIUM CHLORIDE
     Route: 041
  6. 0.9% SODIUM CHLORIDE INJECTION [Suspect]
     Active Substance: SODIUM CHLORIDE
     Dosage: DOSE RE?INTRODUCED: XIAIKE + 0.9% SODIUM CHLORIDE
     Route: 041
  7. ENDOXAN [Suspect]
     Active Substance: CYCLOPHOSPHAMIDE
     Dosage: DOSE RE?INTRODUCED: ENDOXAN + 0.9% SODIUM CHLORIDE
     Route: 041
  8. 0.9% SODIUM CHLORIDE INJECTION [Suspect]
     Active Substance: SODIUM CHLORIDE
     Dosage: DAY 1: XIAIKE 3.5 MG + 0.9% SODIUM CHLORIDE 100 ML
     Route: 041
     Dates: start: 20190315, end: 20190315
  9. MABTHERA [Suspect]
     Active Substance: RITUXIMAB
     Dosage: DOSE RE?INTRODUCED: MABTHERA + 0.9% SODIUM CHLORIDE
     Route: 041
  10. PHARMORUBICIN [Suspect]
     Active Substance: EPIRUBICIN
     Dosage: DOSE RE?INTRODUCED: PHARMORUBICIN + 5% GLUCOSE
     Route: 041
  11. ENDOXAN [Suspect]
     Active Substance: CYCLOPHOSPHAMIDE
     Indication: LYMPHOMA
     Dosage: DAY 1: ENDOXAN 800 MG + 0.9% SODIUM CHLORIDE 100 ML
     Route: 041
     Dates: start: 20190315, end: 20190315
  12. 0.9% SODIUM CHLORIDE INJECTION [Suspect]
     Active Substance: SODIUM CHLORIDE
     Dosage: DAY 1: MABTHERA 700 MG + 0.9% SODIUM CHLORIDE 500 ML
     Route: 041
     Dates: start: 20190315, end: 20190315
  13. 0.9% SODIUM CHLORIDE INJECTION [Suspect]
     Active Substance: SODIUM CHLORIDE
     Dosage: DOSE RE?INTRODUCED: MABTHERA + 0.9% SODIUM CHLORIDE
     Route: 041
  14. 5% GLUCOSE  INJECTION [Suspect]
     Active Substance: DEXTROSE
     Indication: MEDICATION DILUTION
     Dosage: DAY 1: PHARMORUBICIN 80 MG + 5% GLUCOSE 100 ML
     Route: 041
     Dates: start: 20190315, end: 20190315
  15. 5% GLUCOSE  INJECTION [Suspect]
     Active Substance: DEXTROSE
     Dosage: DOSE RE?INTRODUCED: PHARMORUBICIN + 5% GLUCOSE
     Route: 041
  16. MABTHERA [Suspect]
     Active Substance: RITUXIMAB
     Indication: LYMPHOMA
     Dosage: DAY 1: MABTHERA 700 MG + 0.9% SODIUM CHLORIDE 500 ML
     Route: 041
     Dates: start: 20190315, end: 20190315

REACTIONS (1)
  - Myelosuppression [Recovered/Resolved]

NARRATIVE: CASE EVENT DATE: 20190402
